FAERS Safety Report 8446830-0 (Version None)
Quarter: 2012Q2

REPORT INFORMATION
  Report Type: 
  Country: None (occurrence: None)
  Receive Date: 20120619
  Receipt Date: 20120608
  Transmission Date: 20120825
  Serious: No
  Sender: FDA-Public Use
  Company Number: US-BIOGENIDEC-2012BI020514

PATIENT
  Age: 50 Year
  Sex: Female

DRUGS (4)
  1. AVONEX [Suspect]
     Route: 030
  2. AVONEX [Suspect]
     Route: 030
     Dates: end: 20120501
  3. AVONEX [Suspect]
     Indication: MULTIPLE SCLEROSIS
     Route: 030
     Dates: start: 20120502
  4. AVONEX [Suspect]
     Route: 030

REACTIONS (4)
  - ORAL MUCOSAL ERUPTION [None]
  - THROAT IRRITATION [None]
  - MULTIPLE ALLERGIES [None]
  - INFLUENZA LIKE ILLNESS [None]
